FAERS Safety Report 23172878 (Version 4)
Quarter: 2023Q4

REPORT INFORMATION
  Report Type: Spontaneous
  Country: US (occurrence: US)
  Receive Date: 20231110
  Receipt Date: 20231219
  Transmission Date: 20240110
  Serious: Yes (Other)
  Sender: FDA-Public Use
  Company Number: US-Calliditas-2023CAL01431

PATIENT
  Age: 61 Year
  Sex: Male

DRUGS (4)
  1. TARPEYO [Suspect]
     Active Substance: BUDESONIDE
     Indication: IgA nephropathy
     Dosage: 16 MG (4 MG CAPSULES) ONCE DAILY
     Route: 048
     Dates: start: 20230711, end: 20231206
  2. METOPROLOL [Concomitant]
     Active Substance: METOPROLOL
  3. GLIPIZIDE [Concomitant]
     Active Substance: GLIPIZIDE
  4. AMLODIPINE [Concomitant]
     Active Substance: AMLODIPINE BESYLATE

REACTIONS (9)
  - Muscular weakness [Recovering/Resolving]
  - Alopecia [Recovering/Resolving]
  - Sluggishness [Recovering/Resolving]
  - Hypertensive urgency [Unknown]
  - Headache [Unknown]
  - Erythema [Unknown]
  - Swelling face [Unknown]
  - Blister [Unknown]
  - Pustule [Unknown]

NARRATIVE: CASE EVENT DATE: 20230811
